APPROVED DRUG PRODUCT: EXEMESTANE
Active Ingredient: EXEMESTANE
Strength: 25MG
Dosage Form/Route: TABLET;ORAL
Application: A216454 | Product #001 | TE Code: AB
Applicant: EUGIA PHARMA SPECIALITIES LTD
Approved: May 20, 2022 | RLD: No | RS: No | Type: RX